FAERS Safety Report 12341264 (Version 1)
Quarter: 2016Q2

REPORT INFORMATION
  Report Type: Spontaneous
  Country: DE (occurrence: DE)
  Receive Date: 20160506
  Receipt Date: 20160506
  Transmission Date: 20160815
  Serious: Yes (Other)
  Sender: FDA-Public Use
  Company Number: DE-CONCORDIA PHARMACEUTICALS INC.-CO-PL-DE-2016-210

PATIENT
  Sex: Female

DRUGS (6)
  1. BOOSTRIX [Concomitant]
     Active Substance: TETANUS TOXOID, REDUCED DIPHTHERIA TOXOID AND ACELLULAR PERTUSSIS VACCINE, ADSORBED ANTIGENS
     Dates: start: 20150609, end: 20150609
  2. FENISTIL [Concomitant]
     Active Substance: DIMETHINDENE
  3. HYDROXYCHLOROQUINE SULFATE. [Suspect]
     Active Substance: HYDROXYCHLOROQUINE SULFATE
     Indication: SYSTEMIC LUPUS ERYTHEMATOSUS
     Route: 064
     Dates: start: 20150325, end: 20160107
  4. MONTELUKAST [Concomitant]
     Active Substance: MONTELUKAST SODIUM
  5. FEMIBION [Concomitant]
     Active Substance: VITAMINS
  6. EUPHORBIUM COMP [Concomitant]

REACTIONS (1)
  - Small for dates baby [None]

NARRATIVE: CASE EVENT DATE: 20160107
